FAERS Safety Report 26144807 (Version 1)
Quarter: 2025Q4

REPORT INFORMATION
  Report Type: Report from Study
  Country: US (occurrence: US)
  Receive Date: 20251211
  Receipt Date: 20251211
  Transmission Date: 20260117
  Serious: No
  Sender: CELLTRION
  Company Number: US-CELLTRION INC.-2025US037662

PATIENT

DRUGS (2)
  1. INFLIXIMAB-DYYB [Suspect]
     Active Substance: INFLIXIMAB-DYYB
     Indication: Colitis ulcerative
     Dosage: EVERY TWO WEEKS
     Route: 058
     Dates: start: 20250926
  2. INFLIXIMAB-DYYB [Suspect]
     Active Substance: INFLIXIMAB-DYYB
     Dosage: EVERY TWO WEEKS
     Route: 058
     Dates: start: 20251108

REACTIONS (5)
  - Device malfunction [Not Recovered/Not Resolved]
  - Injection site rash [Unknown]
  - Injection site pain [Unknown]
  - Nausea [Not Recovered/Not Resolved]
  - Drug dose omission by device [Not Recovered/Not Resolved]

NARRATIVE: CASE EVENT DATE: 20250926
